FAERS Safety Report 6119421-4 (Version None)
Quarter: 2009Q1

REPORT INFORMATION
  Report Type: 
  Country: None (occurrence: None)
  Receive Date: 20090316
  Receipt Date: 20090306
  Transmission Date: 20090719
  Serious: Yes (Hospitalization)
  Sender: FDA-Public Use
  Company Number: A0772843A

PATIENT
  Age: 42 Year
  Sex: Female
  Weight: 104.5 kg

DRUGS (9)
  1. AVANDIA [Suspect]
     Indication: DIABETES MELLITUS
     Route: 048
     Dates: start: 20040310, end: 20061101
  2. NYSTATIN [Concomitant]
  3. NEXIUM [Concomitant]
  4. DIPHENHYDRAMINE HCL [Concomitant]
  5. OXYBUTYNIN CHLORIDE [Concomitant]
  6. PROMETHAZINE [Concomitant]
  7. ENALAPRIL [Concomitant]
  8. HYDROCODONE BITARTRATE + ACETAMINOPHEN [Concomitant]
  9. GABAPENTIN [Concomitant]

REACTIONS (1)
  - CEREBROVASCULAR ACCIDENT [None]
